FAERS Safety Report 16922239 (Version 1)
Quarter: 2019Q4

REPORT INFORMATION
  Report Type: Spontaneous
  Country: DE (occurrence: DE)
  Receive Date: 20191015
  Receipt Date: 20191015
  Transmission Date: 20200122
  Serious: Yes (Other)
  Sender: FDA-Public Use
  Company Number: NVSC2019DE003823

PATIENT
  Sex: Female

DRUGS (1)
  1. TEGRETAL [Suspect]
     Active Substance: CARBAMAZEPINE
     Indication: EPILEPSY
     Dosage: 400 MG, QD (20 YEARS AGO)
     Route: 065

REACTIONS (6)
  - Dizziness [Unknown]
  - Alopecia [Unknown]
  - Pelvic fracture [Unknown]
  - Epilepsy [Unknown]
  - Herpes zoster [Unknown]
  - Feeling abnormal [Unknown]

NARRATIVE: CASE EVENT DATE: 201805
